FAERS Safety Report 7906268-9 (Version None)
Quarter: 2011Q4

REPORT INFORMATION
  Report Type: 
  Country: None (occurrence: None)
  Receive Date: 20111110
  Receipt Date: 20111012
  Transmission Date: 20120403
  Serious: No
  Sender: FDA-Public Use
  Company Number: US-BAYER-2011-099824

PATIENT
  Sex: Female

DRUGS (1)
  1. BEYAZ [Suspect]
     Route: 048

REACTIONS (4)
  - ABDOMINAL PAIN [None]
  - DYSMENORRHOEA [None]
  - HEADACHE [None]
  - ACNE [None]
